FAERS Safety Report 8894661 (Version 1)
Quarter: 2012Q4

REPORT INFORMATION
  Report Type: 
  Country: US (occurrence: US)
  Receive Date: 20121107
  Receipt Date: 20121107
  Transmission Date: 20130627
  Serious: No
  Sender: FDA-Public Use
  Company Number: US-AMGEN-USASP2011059165

PATIENT
  Age: 83 Year
  Sex: Female

DRUGS (21)
  1. ENBREL [Suspect]
     Indication: PRODUCT USED FOR UNKNOWN INDICATION
     Dosage: 50 mg, qwk
  2. FOSAMAX [Concomitant]
     Dosage: 35 mg, UNK
  3. METHOTREXATE [Concomitant]
     Dosage: 2.5 mg, UNK
  4. TRAVATAN Z [Concomitant]
     Dosage: 0.004 %, UNK
  5. MUPIROCIN [Concomitant]
     Dosage: 2 %, UNK
  6. VALIUM [Concomitant]
     Dosage: 2 mg, UNK
  7. PLENDIL [Concomitant]
     Dosage: 2.5 mg, UNK
  8. PRILOSEC [Concomitant]
     Dosage: 40 mg, UNK
  9. LEVOTHYROXIN [Concomitant]
     Dosage: 137 mug, UNK
  10. WARFARIN [Concomitant]
     Dosage: 3 mg, UNK
  11. ESTRACEPT [Concomitant]
     Dosage: 2 mg, UNK
  12. SPIRIVA [Concomitant]
  13. LOSARTAN POTASSIUM [Concomitant]
     Dosage: 100 mg, UNK
  14. POTASSIUM [Concomitant]
     Dosage: 75 mg, UNK
  15. FISH OIL [Concomitant]
  16. CALCIUM [Concomitant]
     Dosage: 500 mg, UNK
  17. MULTIVITAMINS [Concomitant]
  18. CRANBERRY [Concomitant]
     Dosage: 400 mg, UNK
  19. TYLENOL [Concomitant]
     Dosage: 325 mg, UNK
  20. IMODIUM [Concomitant]
  21. MELATONIN [Concomitant]
     Dosage: 3 mg, UNK

REACTIONS (2)
  - Pruritus [Unknown]
  - Paraesthesia [Unknown]
